FAERS Safety Report 15231728 (Version 12)
Quarter: 2021Q1

REPORT INFORMATION
  Report Type: Spontaneous
  Country: US (occurrence: US)
  Receive Date: 20180802
  Receipt Date: 20210120
  Transmission Date: 20210419
  Serious: No
  Sender: FDA-Public Use
  Company Number: US-PFIZER INC-2018309663

PATIENT
  Age: 61 Year
  Sex: Female
  Weight: 53.07 kg

DRUGS (3)
  1. LYRICA [Suspect]
     Active Substance: PREGABALIN
     Indication: BACK PAIN
     Dosage: 100 MG, 3X/DAY(1 CAPSULE TID 90 DAYS)
     Route: 048
  2. LYRICA [Suspect]
     Active Substance: PREGABALIN
     Indication: NERVE INJURY
     Dosage: 100 MG, 3X/DAY
     Route: 048
     Dates: start: 2013, end: 20180721
  3. LYRICA [Suspect]
     Active Substance: PREGABALIN
     Indication: EYE PAIN
     Dosage: 150 MG

REACTIONS (3)
  - Sensory disturbance [Unknown]
  - Pain [Unknown]
  - Feeling abnormal [Not Recovered/Not Resolved]

NARRATIVE: CASE EVENT DATE: 20200229
